FAERS Safety Report 23890519 (Version 2)
Quarter: 2024Q2

REPORT INFORMATION
  Report Type: Spontaneous
  Country: JP (occurrence: JP)
  Receive Date: 20240523
  Receipt Date: 20240528
  Transmission Date: 20240716
  Serious: No
  Sender: FDA-Public Use
  Company Number: JP-BAYER-2024A072761

PATIENT
  Age: 84 Year
  Sex: Female

DRUGS (4)
  1. KERENDIA [Suspect]
     Active Substance: FINERENONE
     Indication: Type 2 diabetes mellitus
     Dosage: DAILY DOSE 10 MG
     Route: 048
     Dates: start: 20240430
  2. KERENDIA [Suspect]
     Active Substance: FINERENONE
     Indication: Chronic kidney disease
  3. ESAXERENONE [Concomitant]
     Active Substance: ESAXERENONE
     Dosage: DAILY DOSE 2.5 MG
  4. ESAXERENONE [Concomitant]
     Active Substance: ESAXERENONE
     Dosage: DAILY DOSE 5 MG

REACTIONS (1)
  - Pruritus [None]

NARRATIVE: CASE EVENT DATE: 20240501
